FAERS Safety Report 24343417 (Version 3)
Quarter: 2024Q4

REPORT INFORMATION
  Report Type: Spontaneous
  Country: DK (occurrence: DK)
  Receive Date: 20240920
  Receipt Date: 20241109
  Transmission Date: 20250114
  Serious: Yes (Hospitalization)
  Sender: ABBVIE
  Company Number: DK-LUNDBECK-DKLU4004179

PATIENT

DRUGS (3)
  1. CIPRALEX [Suspect]
     Active Substance: ESCITALOPRAM OXALATE
     Indication: Stress
     Dosage: RESTARTED
     Route: 065
  2. CIPRALEX [Suspect]
     Active Substance: ESCITALOPRAM OXALATE
     Indication: Stress
     Route: 065
  3. CIPRALEX [Suspect]
     Active Substance: ESCITALOPRAM OXALATE
     Indication: Stress
     Route: 065

REACTIONS (9)
  - Drug withdrawal syndrome [Not Recovered/Not Resolved]
  - Head discomfort [Not Recovered/Not Resolved]
  - Stress [Not Recovered/Not Resolved]
  - Head discomfort [Not Recovered/Not Resolved]
  - Helplessness [Not Recovered/Not Resolved]
  - Anxiety [Not Recovered/Not Resolved]
  - Ear discomfort [Not Recovered/Not Resolved]
  - Tremor [Unknown]
  - Therapy cessation [Unknown]
